FAERS Safety Report 26115553 (Version 1)
Quarter: 2025Q4

REPORT INFORMATION
  Report Type: Spontaneous
  Country: IN (occurrence: IN)
  Receive Date: 20251203
  Receipt Date: 20251203
  Transmission Date: 20260117
  Serious: Yes (Hospitalization)
  Sender: ACCORD
  Company Number: IN-MLMSERVICE-20251112-PI709822-00218-1

PATIENT
  Age: 22 Year
  Sex: Female

DRUGS (6)
  1. METHOTREXATE [Suspect]
     Active Substance: METHOTREXATE
     Indication: Systemic scleroderma
  2. NIFEDIPINE [Concomitant]
     Active Substance: NIFEDIPINE
     Indication: Systemic scleroderma
  3. FOLIC ACID [Concomitant]
     Active Substance: FOLIC ACID
     Indication: Systemic scleroderma
  4. BOSENTAN [Concomitant]
     Active Substance: BOSENTAN
     Indication: Systemic scleroderma
  5. PANTOPRAZOLE [Concomitant]
     Active Substance: PANTOPRAZOLE
     Indication: Systemic scleroderma
  6. DOMPERIDONE [Concomitant]
     Active Substance: DOMPERIDONE
     Indication: Systemic scleroderma

REACTIONS (2)
  - Scabies [Recovering/Resolving]
  - Dermatitis exfoliative generalised [Recovering/Resolving]
